FAERS Safety Report 9062767 (Version 1)
Quarter: 2013Q1

REPORT INFORMATION
  Report Type: Spontaneous
  Country: US (occurrence: US)
  Receive Date: 20130213
  Receipt Date: 20130213
  Transmission Date: 20140127
  Serious: No
  Sender: FDA-Public Use
  Company Number: US-PFIZER INC-2013057843

PATIENT
  Age: 41 Year
  Sex: Female
  Weight: 87.5 kg

DRUGS (3)
  1. LYRICA [Suspect]
     Indication: SPINAL CORD INJURY
     Dosage: 50 MG, 1X/DAY
     Route: 048
     Dates: start: 20130204
  2. LISINOPRIL [Concomitant]
     Indication: HYPERTENSION
     Dosage: 20 MG, 1X/DAY
  3. TIZANIDINE [Concomitant]
     Indication: MUSCLE RELAXANT THERAPY
     Dosage: 4 MG, 1X/DAY

REACTIONS (2)
  - Headache [Not Recovered/Not Resolved]
  - Insomnia [Not Recovered/Not Resolved]
